FAERS Safety Report 9235387 (Version 1)
Quarter: 2013Q2

REPORT INFORMATION
  Report Type: Spontaneous
  Country: US (occurrence: US)
  Receive Date: 20130417
  Receipt Date: 20130417
  Transmission Date: 20140414
  Serious: No
  Sender: FDA-Public Use
  Company Number: US-009507513-1304USA006466

PATIENT
  Sex: 0

DRUGS (1)
  1. JANUMET [Suspect]
     Route: 048

REACTIONS (3)
  - Discomfort [Unknown]
  - Abdominal discomfort [Unknown]
  - Rash [Unknown]
